FAERS Safety Report 19074885 (Version 2)
Quarter: 2021Q2

REPORT INFORMATION
  Report Type: Other
  Country: ME (occurrence: ME)
  Receive Date: 20210331
  Receipt Date: 20210602
  Transmission Date: 20210717
  Serious: No
  Sender: FDA-Public Use
  Company Number: ME-ROCHE-2800073

PATIENT
  Age: 54 Year
  Sex: Male
  Weight: 115 kg

DRUGS (5)
  1. METHYLPREDNISOLONE. [Concomitant]
     Active Substance: METHYLPREDNISOLONE
     Indication: PREMEDICATION
     Dosage: SUBSEQUENT DOSE: 20/MAY/2019, 21/OCT/2019, 06/APR/2020, 21/SEP/2020, 23/MAR/2021
     Route: 042
     Dates: start: 20190506
  2. PARACETAMOL [Concomitant]
     Active Substance: ACETAMINOPHEN
     Indication: PREMEDICATION
     Dosage: SUBSEQUENT DOSE: 20/MAY/2019, 21/OCT/2019, 06/APR/2020, 21/SEP/2020, 23/MAR/2021
     Route: 048
     Dates: start: 20190506
  3. OCRELIZUMAB. [Suspect]
     Active Substance: OCRELIZUMAB
     Indication: MULTIPLE SCLEROSIS
     Dosage: SUBSEQUENT DOSES: 20/MAY/2019
     Route: 042
     Dates: start: 20190506
  4. OCRELIZUMAB. [Suspect]
     Active Substance: OCRELIZUMAB
     Dosage: SUBSEQUENT DOSES: 06/APR/2020, 21/SEP/2020, 23/MARP/2021
     Route: 042
     Dates: start: 20191021
  5. CHLORPHENAMINE [Concomitant]
     Active Substance: CHLORPHENIRAMINE MALEATE
     Indication: PREMEDICATION
     Dosage: SUBSEQUENT DOSE: 20/MAY/2019, 21/OCT/2019, 06/APR/2020, 21/SEP/2020, 23/MAR/2021
     Route: 030
     Dates: start: 20190506

REACTIONS (1)
  - COVID-19 [Recovered/Resolved]

NARRATIVE: CASE EVENT DATE: 20210216
